FAERS Safety Report 15067132 (Version 3)
Quarter: 2019Q1

REPORT INFORMATION
  Report Type: Spontaneous
  Country: FR (occurrence: FR)
  Receive Date: 20180626
  Receipt Date: 20190325
  Transmission Date: 20190417
  Serious: Yes (Hospitalization, Other)
  Sender: FDA-Public Use
  Company Number: FR-GLAXOSMITHKLINE-FR2018108494

PATIENT
  Age: 71 Year
  Sex: Male
  Weight: 85 kg

DRUGS (6)
  1. PIPERACILLINE + TAZOBACTAM [Suspect]
     Active Substance: PIPERACILLIN SODIUM\TAZOBACTAM SODIUM
     Indication: ERYSIPELAS
     Dosage: 4 DF, QD
     Route: 042
     Dates: start: 20180521, end: 20180522
  2. MEROPENEM. [Suspect]
     Active Substance: MEROPENEM
     Indication: ERYSIPELAS
     Dosage: 2 DF, QD
     Route: 042
     Dates: start: 20180522, end: 20180524
  3. MALARONE [Suspect]
     Active Substance: ATOVAQUONE\PROGUANIL HYDROCHLORIDE
     Indication: MALARIA
     Dosage: 4 DF, QD
     Route: 048
     Dates: start: 20180524, end: 20180526
  4. MALACEF [Suspect]
     Active Substance: ARTESUNATE
     Indication: MALARIA
     Dosage: UNK
     Route: 042
     Dates: start: 20180519, end: 20180524
  5. ROCEPHINE [Suspect]
     Active Substance: CEFTRIAXONE SODIUM
     Indication: ERYSIPELAS
     Dosage: 1 DF, QD
     Route: 042
     Dates: start: 20180524, end: 20180530
  6. AUGMENTIN [Suspect]
     Active Substance: AMOXICILLIN\CLAVULANATE POTASSIUM
     Indication: ERYSIPELAS
     Dosage: 2 DF, QD
     Route: 042
     Dates: start: 20180517, end: 20180521

REACTIONS (2)
  - Neutropenia [Recovered/Resolved]
  - Confusional state [Not Recovered/Not Resolved]

NARRATIVE: CASE EVENT DATE: 20180523
